FAERS Safety Report 9332999 (Version 1)
Quarter: 2013Q2

REPORT INFORMATION
  Report Type: Report from Study
  Country: BE (occurrence: BE)
  Receive Date: 20130606
  Receipt Date: 20130606
  Transmission Date: 20140414
  Serious: Yes (Hospitalization)
  Sender: FDA-Public Use
  Company Number: BE-TEVA-391348ISR

PATIENT
  Age: 76 Year
  Sex: Female
  Weight: 81 kg

DRUGS (21)
  1. FLUOROURACIL [Suspect]
     Indication: COLORECTAL CANCER METASTATIC
     Dosage: 4608 MILLIGRAM DAILY;
     Route: 042
     Dates: start: 20121030, end: 20130207
  2. FLUOROURACIL [Suspect]
     Dosage: 768 MILLIGRAM DAILY;
     Route: 040
     Dates: start: 20121030, end: 20130205
  3. FLUOROURACIL [Suspect]
     Dosage: 4608 MILLIGRAM DAILY;
     Route: 042
     Dates: start: 20130305
  4. FLUOROURACIL [Suspect]
     Dosage: 768 MILLIGRAM DAILY;
     Route: 040
     Dates: start: 20130305
  5. OXALIPLATIN [Suspect]
     Indication: COLORECTAL CANCER METASTATIC
     Dosage: 163 MILLIGRAM DAILY;
     Route: 065
     Dates: start: 20121030, end: 20130205
  6. OXALIPLATIN [Suspect]
     Dosage: 163 MILLIGRAM DAILY;
     Route: 065
     Dates: start: 20130305
  7. LEUCOVORIN CALCIUM [Suspect]
     Indication: COLORECTAL CANCER METASTATIC
     Dosage: 768 MILLIGRAM DAILY;
     Route: 065
     Dates: start: 20121030, end: 20130205
  8. LEUCOVORIN CALCIUM [Suspect]
     Dosage: 768 MILLIGRAM DAILY;
     Route: 065
     Dates: start: 20130305
  9. BEVACIZUMAB [Suspect]
     Indication: COLORECTAL CANCER METASTATIC
     Dosage: 407 MILLIGRAM DAILY;
     Route: 042
     Dates: start: 20121030, end: 20130205
  10. BEVACIZUMAB [Suspect]
     Dosage: 407 MILLIGRAM DAILY;
     Route: 042
     Dates: start: 20130305
  11. MOVICOL [Concomitant]
     Dates: start: 20121030
  12. STRUMAZOL [Concomitant]
     Dates: start: 20121211
  13. COVERSYL [Concomitant]
     Dates: start: 20130122
  14. ALOXI [Concomitant]
     Dates: start: 20121127
  15. SOLU-MEDROL [Concomitant]
     Dates: start: 20121030
  16. FERINGECT [Concomitant]
     Dates: start: 20130122
  17. LYSOX [Concomitant]
     Dates: start: 20121115
  18. SIMVASTATIN [Concomitant]
     Dates: start: 2005
  19. DAFALGAN [Concomitant]
     Dates: start: 20121022
  20. AMLOR [Concomitant]
     Dates: start: 20121127
  21. PRIMPERAN [Concomitant]
     Dates: start: 20121114

REACTIONS (1)
  - Diverticulitis [Recovered/Resolved]
